FAERS Safety Report 23957114 (Version 1)
Quarter: 2024Q2

REPORT INFORMATION
  Report Type: Other
  Country: CN (occurrence: CN)
  Receive Date: 20240610
  Receipt Date: 20240610
  Transmission Date: 20240716
  Serious: Yes (Other)
  Sender: FDA-Public Use
  Company Number: CN-002147023-NVSC2024CN117313

PATIENT
  Age: 69 Day
  Sex: Male

DRUGS (18)
  1. LUCENTIS [Suspect]
     Active Substance: RANIBIZUMAB
     Indication: Retinopathy of prematurity
     Dosage: 0.2 MG
     Route: 050
     Dates: start: 20231019, end: 20231019
  2. OFLOXACIN [Concomitant]
     Active Substance: OFLOXACIN
     Indication: Prophylaxis
     Dosage: 1 DRP
     Dates: start: 20231020, end: 20231026
  3. OFLOXACIN [Concomitant]
     Active Substance: OFLOXACIN
     Dosage: 1 DRP
     Dates: start: 20221227, end: 20221227
  4. OFLOXACIN [Concomitant]
     Active Substance: OFLOXACIN
     Dosage: 0.2 ML
     Dates: start: 20231228, end: 20231229
  5. OFLOXACIN [Concomitant]
     Active Substance: OFLOXACIN
     Dosage: 1 DRP
     Dates: start: 20240327, end: 20240327
  6. OFLOXACIN [Concomitant]
     Active Substance: OFLOXACIN
     Dosage: UNK
     Dates: start: 20231020, end: 20231026
  7. CALCITRIOL [Concomitant]
     Active Substance: CALCITRIOL
     Indication: Mineral supplementation
     Dosage: UNK
     Dates: start: 2023, end: 2023
  8. CALCITRIOL [Concomitant]
     Active Substance: CALCITRIOL
     Dosage: 1 DOSAGE FORM
     Dates: start: 20231228, end: 20240104
  9. CEFOPERAZONE SODIUM\SULBACTAM SODIUM [Concomitant]
     Active Substance: CEFOPERAZONE SODIUM\SULBACTAM SODIUM
     Indication: Infection
     Dosage: UNK
     Dates: start: 20231219, end: 20231227
  10. CYSTEINE\GLYCINE\GLYCYRRHIZIN [Concomitant]
     Active Substance: CYSTEINE\GLYCINE\GLYCYRRHIZIN
     Indication: Prophylaxis
     Dosage: UNK
     Dates: start: 2023, end: 2023
  11. FLUCONAZOLE [Concomitant]
     Active Substance: FLUCONAZOLE
     Indication: Prophylaxis
     Dosage: UNK
     Dates: start: 2023, end: 2023
  12. FLUORESCEIN SODIUM [Concomitant]
     Active Substance: FLUORESCEIN SODIUM
     Indication: Angiogram
     Dosage: 0.5 G
     Dates: start: 20240125, end: 20240125
  13. HYDROCHLOROTHIAZIDE [Concomitant]
     Active Substance: HYDROCHLOROTHIAZIDE
     Indication: Polyuria
     Dosage: UNK
     Dates: start: 20221107, end: 20231227
  14. HYDROCHLOROTHIAZIDE [Concomitant]
     Active Substance: HYDROCHLOROTHIAZIDE
     Dosage: 2 MG
     Dates: start: 20231228, end: 20231230
  15. LEVOFLOXACIN [Concomitant]
     Active Substance: LEVOFLOXACIN
     Indication: Prophylaxis
     Dosage: 1 DRP
     Dates: start: 20240125, end: 20240131
  16. MEROPENEM [Concomitant]
     Active Substance: MEROPENEM
     Indication: Infection
     Dosage: UNK
     Dates: start: 20230930, end: 20231021
  17. SPIRONOLACTONE [Concomitant]
     Active Substance: SPIRONOLACTONE
     Indication: Polyuria
     Dosage: UNK
     Dates: start: 20231107, end: 20231227
  18. URSODIOL [Concomitant]
     Active Substance: URSODIOL
     Indication: Prophylaxis
     Dosage: UNK
     Dates: start: 2023, end: 2023

REACTIONS (1)
  - Vitreous haemorrhage [Recovered/Resolved]

NARRATIVE: CASE EVENT DATE: 20231128
